FAERS Safety Report 9560894 (Version 1)
Quarter: 2013Q3

REPORT INFORMATION
  Report Type: Spontaneous
  Country: US (occurrence: US)
  Receive Date: 20130927
  Receipt Date: 20130927
  Transmission Date: 20140515
  Serious: No
  Sender: FDA-Public Use
  Company Number: US-BIOGENIDEC-2013BI055157

PATIENT
  Age: 56 Year
  Sex: Female

DRUGS (6)
  1. TECFIDERA [Suspect]
     Indication: MULTIPLE SCLEROSIS
     Route: 048
     Dates: start: 20130608, end: 20130608
  2. LOSARTAN [Concomitant]
  3. BONIVA [Concomitant]
  4. CRANBERRY [Concomitant]
  5. VITAMIN B12 [Concomitant]
  6. VITAMIN D3 [Concomitant]

REACTIONS (2)
  - Hypersensitivity [Unknown]
  - Flushing [Unknown]
